FAERS Safety Report 23357535 (Version 1)
Quarter: 2024Q1

REPORT INFORMATION
  Report Type: Spontaneous
  Country: FR (occurrence: FR)
  Receive Date: 20240102
  Receipt Date: 20240102
  Transmission Date: 20240410
  Serious: Yes (Life-Threatening)
  Sender: FDA-Public Use
  Company Number: None

PATIENT
  Age: 35 Year
  Sex: Female
  Weight: 71 kg

DRUGS (5)
  1. CLOZAPINE [Suspect]
     Active Substance: CLOZAPINE
     Indication: Schizophrenia
     Dosage: 500 MILLIGRAM, QD
     Route: 048
     Dates: start: 20230601, end: 20231108
  2. TRIMEPRAZINE [Suspect]
     Active Substance: TRIMEPRAZINE
     Indication: Insomnia
     Dosage: 10 DROP, QD
     Route: 048
     Dates: end: 20231108
  3. VALIUM [Suspect]
     Active Substance: DIAZEPAM
     Indication: Schizophrenia
     Dosage: 10 DROP, QD, 10 DROPS A DAY
     Route: 048
     Dates: end: 20231108
  4. HALDOL [Suspect]
     Active Substance: HALOPERIDOL
     Indication: Schizophrenia
     Dosage: 2 DOSAGE FORM, QD, 2 TABLET PER DAY
     Route: 048
     Dates: end: 20231108
  5. TROPATEPINE HYDROCHLORIDE [Suspect]
     Active Substance: TROPATEPINE HYDROCHLORIDE
     Indication: Parkinsonism hyperpyrexia syndrome
     Dosage: 20 MILLIGRAM, QD
     Route: 048
     Dates: end: 20231108

REACTIONS (1)
  - Faecaloma [Recovered/Resolved]

NARRATIVE: CASE EVENT DATE: 20231108
